FAERS Safety Report 9345844 (Version 1)
Quarter: 2013Q2

REPORT INFORMATION
  Report Type: Spontaneous
  Country: US (occurrence: US)
  Receive Date: 20130613
  Receipt Date: 20130613
  Transmission Date: 20140414
  Serious: No
  Sender: FDA-Public Use
  Company Number: US-BAYER-2013-072088

PATIENT
  Age: 86 Year
  Sex: Female
  Weight: 75 kg

DRUGS (3)
  1. ALEVE CAPLET [Suspect]
     Indication: ANALGESIC THERAPY
     Dosage: 1 UNK, UNK
     Route: 048
     Dates: start: 2003
  2. ACYCLOVIR [ACICLOVIR] [Concomitant]
  3. VITAMIN D [Concomitant]

REACTIONS (3)
  - Local swelling [Not Recovered/Not Resolved]
  - Joint swelling [Not Recovered/Not Resolved]
  - Incorrect drug administration duration [None]
